FAERS Safety Report 10386716 (Version 1)
Quarter: 2014Q1

REPORT INFORMATION
  Report Type: Spontaneous
  Country: US (occurrence: None)
  Receive Date: 20140306
  Receipt Date: 20140306
  Transmission Date: 20141002
  Serious: Yes (Hospitalization, Other)
  Sender: FDA-Public Use
  Company Number: 163-21880-13062131

PATIENT
  Age: 57 Year
  Sex: Female

DRUGS (3)
  1. REVLIMID (LENALIDOMIDE) (CAPSULES) [Suspect]
     Indication: PLASMA CELL MYELOMA
     Route: 048
     Dates: start: 2008, end: 200905
  2. DEXAMETHASONE [Suspect]
  3. VELCADE (BORTEZOMIB) [Concomitant]

REACTIONS (1)
  - Pneumonia [None]
